FAERS Safety Report 6808805-4 (Version None)
Quarter: 2010Q2

REPORT INFORMATION
  Report Type: 
  Country: None (occurrence: None)
  Receive Date: 20100630
  Receipt Date: 20090916
  Transmission Date: 20101027
  Serious: No
  Sender: FDA-Public Use
  Company Number: US-PFIZER INC-2009252614

PATIENT
  Sex: Male
  Weight: 113 kg

DRUGS (3)
  1. VIAGRA [Suspect]
     Indication: ERECTILE DYSFUNCTION
     Route: 048
     Dates: start: 20090701
  2. LEVOTHYROXINE [Concomitant]
     Route: 048
  3. ALTACE [Concomitant]
     Route: 048

REACTIONS (1)
  - ERECTILE DYSFUNCTION [None]
